FAERS Safety Report 24527137 (Version 1)
Quarter: 2024Q4

REPORT INFORMATION
  Report Type: Report from Study
  Country: US (occurrence: US)
  Receive Date: 20241021
  Receipt Date: 20241021
  Transmission Date: 20250115
  Serious: No
  Sender: ROCHE
  Company Number: US-ROCHE-3491730

PATIENT
  Age: 83 Year
  Sex: Female

DRUGS (1)
  1. COTELLIC [Suspect]
     Active Substance: COBIMETINIB
     Indication: Metabolic disorder
     Dosage: TAKE 1 TABLET BY MOUTH DAILY FOR 21 DAYS AND THEN STOP FOR 7 DAYS
     Route: 048
     Dates: start: 2021

REACTIONS (3)
  - Respiratory tract infection [Recovered/Resolved]
  - Off label use [Unknown]
  - Malaise [Unknown]
